FAERS Safety Report 4377862-X (Version None)
Quarter: 2004Q2

REPORT INFORMATION
  Report Type: 
  Country: None (occurrence: None)
  Receive Date: 20040609
  Receipt Date: 20040528
  Transmission Date: 20050107
  Serious: Yes (Death)
  Sender: FDA-Public Use
  Company Number: 04P-144-0262366-00

PATIENT
  Age: 43 Year
  Sex: Male

DRUGS (4)
  1. KALETRA [Suspect]
     Indication: HIV INFECTION
     Dosage: 3 CAPSULE, 2 IN 1 D. PER ORAL
     Route: 048
     Dates: start: 20030211
  2. STAVUDINE [Concomitant]
  3. LAMIVUDINE [Concomitant]
  4. BACTRIM [Concomitant]

REACTIONS (1)
  - PROGRESSIVE MULTIFOCAL LEUKOENCEPHALOPATHY [None]
